FAERS Safety Report 9024197 (Version 2)
Quarter: 2013Q1

REPORT INFORMATION
  Report Type: Spontaneous
  Country: US (occurrence: US)
  Receive Date: 20130122
  Receipt Date: 20130227
  Transmission Date: 20140127
  Serious: No
  Sender: FDA-Public Use
  Company Number: US-BIOGENIDEC-2013BI004592

PATIENT
  Age: 43 None
  Sex: Female

DRUGS (4)
  1. AVONEX [Suspect]
     Indication: MULTIPLE SCLEROSIS
     Route: 030
     Dates: start: 20121108, end: 201301
  2. AVONEX [Suspect]
     Indication: MULTIPLE SCLEROSIS
     Route: 030
     Dates: start: 20130107
  3. AVONEX [Suspect]
     Indication: MULTIPLE SCLEROSIS
     Route: 030
     Dates: start: 20130126
  4. IBUPROFEN [Concomitant]
     Indication: PREMEDICATION

REACTIONS (9)
  - Heat exhaustion [Not Recovered/Not Resolved]
  - Influenza like illness [Unknown]
  - Dizziness [Not Recovered/Not Resolved]
  - Paraesthesia [Unknown]
  - Pain [Unknown]
  - Headache [Recovered/Resolved]
  - Malaise [Unknown]
  - Pyrexia [Recovered/Resolved]
  - Nausea [Unknown]
